FAERS Safety Report 13498789 (Version 1)
Quarter: 2017Q2

REPORT INFORMATION
  Report Type: Spontaneous
  Country: US (occurrence: US)
  Receive Date: 20170428
  Receipt Date: 20170428
  Transmission Date: 20170830
  Serious: Yes (Hospitalization)
  Sender: FDA-Public Use
  Company Number: None

PATIENT
  Age: 43 Year
  Sex: Female

DRUGS (1)
  1. FENTANYL 50MCG/HR [Suspect]
     Active Substance: FENTANYL
     Indication: PAIN
     Dosage: TRANSDERMAL; EVERY 3 DAYS
     Route: 062
     Dates: start: 20170413, end: 20170426

REACTIONS (2)
  - Overdose [None]
  - Drug effect faster than expected [None]

NARRATIVE: CASE EVENT DATE: 20170427
